FAERS Safety Report 17133753 (Version 1)
Quarter: 2019Q4

REPORT INFORMATION
  Report Type: Spontaneous
  Country: US (occurrence: US)
  Receive Date: 20191210
  Receipt Date: 20191210
  Transmission Date: 20200122
  Serious: Yes (Other)
  Sender: FDA-Public Use
  Company Number: US-UCBSA-2016038859

PATIENT
  Age: 51 Year
  Sex: Female

DRUGS (5)
  1. KEPPRA [Suspect]
     Active Substance: LEVETIRACETAM
     Indication: PRODUCT USED FOR UNKNOWN INDICATION
     Dosage: UNK
  2. LAMICTAL [Suspect]
     Active Substance: LAMOTRIGINE
     Indication: PRODUCT USED FOR UNKNOWN INDICATION
     Dosage: UNK
  3. ONFI [Suspect]
     Active Substance: CLOBAZAM
     Indication: EPILEPSY
     Dosage: STRENGTH- 10 MG, 5 MG AM, ONCE DAILY (QD)
  4. ONFI [Suspect]
     Active Substance: CLOBAZAM
     Dosage: STRENGTH- 10 MG, 10 MG PM, ONCE DAILY (QD)
  5. VIMPAT [Concomitant]
     Active Substance: LACOSAMIDE
     Indication: PRODUCT USED FOR UNKNOWN INDICATION
     Dosage: UNK

REACTIONS (8)
  - Irritability [Unknown]
  - Seizure [Unknown]
  - Insomnia [Unknown]
  - Memory impairment [Unknown]
  - Gait disturbance [Unknown]
  - Anxiety [Unknown]
  - Nightmare [Unknown]
  - Depressed mood [Unknown]

NARRATIVE: CASE EVENT DATE: 201411
